FAERS Safety Report 21614710 (Version 1)
Quarter: 2022Q4

REPORT INFORMATION
  Report Type: Spontaneous
  Country: ES (occurrence: ES)
  Receive Date: 20221118
  Receipt Date: 20221118
  Transmission Date: 20230112
  Serious: Yes (Hospitalization)
  Sender: FDA-Public Use
  Company Number: None

PATIENT
  Age: 48 Year
  Sex: Female

DRUGS (2)
  1. CIPROFLOXACIN [Suspect]
     Active Substance: CIPROFLOXACIN
     Indication: Urinary tract infection
     Dosage: 1000 MILLIGRAM DAILY; 500MG EVERY 12 HOURS FOR 3 DAYS (PRIOR TO ADMINISTRATION OF 400MG IV), CIPROFL
     Route: 065
     Dates: start: 20210527, end: 20210529
  2. CIPROFLOXACIN [Suspect]
     Active Substance: CIPROFLOXACIN
     Dosage: UNIT DOSE : 400 MG, FREQUENCY TIME : 1 TOTAL, DURATION : 1 DAYS
     Route: 065
     Dates: start: 20210527, end: 20210527

REACTIONS (2)
  - Metabolic acidosis [Recovered/Resolved]
  - Rhabdomyolysis [Recovered/Resolved]

NARRATIVE: CASE EVENT DATE: 20210527
